FAERS Safety Report 10684242 (Version 2)
Quarter: 2015Q1

REPORT INFORMATION
  Report Type: Report from Study
  Country: NL (occurrence: NL)
  Receive Date: 20141231
  Receipt Date: 20150204
  Transmission Date: 20150720
  Serious: Yes (Hospitalization)
  Sender: FDA-Public Use
  Company Number: NL-ROCHE-1515650

PATIENT
  Age: 60 Year
  Sex: Male
  Weight: 97 kg

DRUGS (5)
  1. DOCETAXEL. [Suspect]
     Active Substance: DOCETAXEL
     Indication: GASTRIC CANCER
     Dosage: ON 04/MAR/2014, PATIENT RECEIVED LAST DOSE PRIOR TO SAE
     Route: 042
     Dates: start: 20131111
  2. TRASTUZUMAB [Suspect]
     Active Substance: TRASTUZUMAB
     Indication: GASTRIC CANCER
     Dosage: ON 02/DEC/2014, PATIENT RECEIVED LAST DOSE PRIOR TO SAE
     Route: 042
     Dates: start: 20131111
  3. CAPECITABINE. [Suspect]
     Active Substance: CAPECITABINE
     Indication: GASTRIC CANCER
     Dosage: ON 02/DEC/2014, PATIENT RECEIVED LAST DOSE PRIOR TO SAE
     Route: 048
     Dates: start: 20131111
  4. BEVACIZUMAB [Suspect]
     Active Substance: BEVACIZUMAB
     Indication: GASTRIC CANCER
     Dosage: ON 02/DEC/2014, PATIENT RECEIVED LAST DOSE PRIOR TO SAE
     Route: 042
     Dates: start: 20131111
  5. OXALIPLATIN. [Suspect]
     Active Substance: OXALIPLATIN
     Indication: GASTRIC CANCER
     Dosage: ON 04/MAR/2014, PATIENT RECEIVED LAST DOSE PRIOR TO SAE
     Route: 042
     Dates: start: 20131111

REACTIONS (2)
  - Cholecystitis [Recovered/Resolved with Sequelae]
  - Liver abscess [Recovered/Resolved]

NARRATIVE: CASE EVENT DATE: 20141223
